FAERS Safety Report 9236876 (Version 1)
Quarter: 2013Q2

REPORT INFORMATION
  Report Type: Spontaneous
  Country: US (occurrence: US)
  Receive Date: 20130417
  Receipt Date: 20130417
  Transmission Date: 20140414
  Serious: Yes (Other)
  Sender: FDA-Public Use
  Company Number: US-TEVA-398749USA

PATIENT
  Age: 5 Year
  Sex: Female

DRUGS (3)
  1. PROAIR HFA [Suspect]
     Indication: ASTHMA
     Route: 055
     Dates: start: 20130107
  2. QVAR [Suspect]
     Indication: ASTHMA
     Route: 055
     Dates: start: 20130219
  3. ZYRTEC [Concomitant]
     Indication: ASTHMA
     Dosage: 5 ML DAILY;
     Route: 048

REACTIONS (2)
  - Tonsillectomy [Recovered/Resolved]
  - Adenoidectomy [Recovered/Resolved]
